FAERS Safety Report 9016501 (Version 1)
Quarter: 2013Q1

REPORT INFORMATION
  Report Type: Spontaneous
  Country: US (occurrence: US)
  Receive Date: 20130116
  Receipt Date: 20130116
  Transmission Date: 20140127
  Serious: No
  Sender: FDA-Public Use
  Company Number: US-ASTRAZENECA-2013SE01706

PATIENT
  Age: 53 Year
  Sex: Female
  Weight: 103 kg

DRUGS (21)
  1. NEXIUM [Suspect]
     Route: 048
  2. OMEPRAZOLE [Suspect]
     Route: 048
  3. ENBREL [Suspect]
     Indication: RHEUMATOID ARTHRITIS
     Route: 065
     Dates: start: 20121101
  4. ISOSORBIDE MONONITRATE [Concomitant]
     Route: 048
  5. IBUPROFEN [Concomitant]
  6. METFORMIN [Concomitant]
  7. NORCO [Concomitant]
     Dosage: 325 MG-5 MG 1 TAB THREE TIMES A DAY
  8. NITROQUICK [Concomitant]
  9. ZOFRON [Concomitant]
  10. NEURONTIN [Concomitant]
  11. NEURONTIN [Concomitant]
  12. CYMBALTA [Concomitant]
  13. CYMBALTA [Concomitant]
  14. CLONAZEPAM [Concomitant]
  15. CLONAZEPAM [Concomitant]
  16. PATADAY [Concomitant]
     Dosage: 0.2% SOLUTION 1 GTT AS NEEDED
  17. TEGRETOL XR [Concomitant]
  18. TEGRETOL XR [Concomitant]
  19. GEODON [Concomitant]
  20. GLIPIZIDE [Concomitant]
  21. SINGULAIR [Concomitant]
     Route: 048

REACTIONS (9)
  - Musculoskeletal stiffness [Not Recovered/Not Resolved]
  - Joint stiffness [Not Recovered/Not Resolved]
  - Back pain [Not Recovered/Not Resolved]
  - Spinal osteoarthritis [Unknown]
  - Bursitis [Unknown]
  - Arthralgia [Not Recovered/Not Resolved]
  - Drug hypersensitivity [Unknown]
  - Injection site reaction [Unknown]
  - Off label use [Unknown]
